FAERS Safety Report 14583179 (Version 1)
Quarter: 2018Q1

REPORT INFORMATION
  Report Type: Spontaneous
  Country: US (occurrence: US)
  Receive Date: 20180228
  Receipt Date: 20180228
  Transmission Date: 20180509
  Serious: Yes (Other)
  Sender: FDA-Public Use
  Company Number: None

PATIENT
  Age: 67 Year
  Sex: Male
  Weight: 108.86 kg

DRUGS (4)
  1. BOUDREAUXS (ZINC OXIDE) [Suspect]
     Active Substance: ZINC OXIDE
  2. TOM^S OF MAINE [Concomitant]
  3. BALMEX DIAPER RASH [Suspect]
     Active Substance: ZINC OXIDE
     Indication: LOCALISED INFECTION
     Route: 061
     Dates: start: 20180126, end: 20180206
  4. DESITIN [Suspect]
     Active Substance: ZINC OXIDE

REACTIONS (2)
  - Myalgia [None]
  - Cough [None]

NARRATIVE: CASE EVENT DATE: 20180206
